FAERS Safety Report 26023438 (Version 1)
Quarter: 2025Q4

REPORT INFORMATION
  Report Type: Spontaneous
  Country: CN (occurrence: CN)
  Receive Date: 20251111
  Receipt Date: 20251111
  Transmission Date: 20260118
  Serious: Yes (Hospitalization)
  Sender: BEIGENE
  Company Number: CN-BEIGENE-BGN-2025-019165

PATIENT
  Age: 42 Year

DRUGS (6)
  1. TISLELIZUMAB [Suspect]
     Active Substance: TISLELIZUMAB
     Indication: Nasopharyngeal cancer
     Dosage: 0.2 GRAM
  2. TISLELIZUMAB [Suspect]
     Active Substance: TISLELIZUMAB
     Dosage: 0.2 GRAM
     Route: 041
  3. TISLELIZUMAB [Suspect]
     Active Substance: TISLELIZUMAB
     Dosage: 0.2 GRAM
     Route: 041
  4. TISLELIZUMAB [Suspect]
     Active Substance: TISLELIZUMAB
     Dosage: 0.2 GRAM
  5. CETUXIMAB [Concomitant]
     Active Substance: CETUXIMAB
     Indication: Nasopharyngeal cancer
     Dosage: 0.8 GRAM
     Route: 041
  6. CETUXIMAB [Concomitant]
     Active Substance: CETUXIMAB
     Dosage: 0.8 GRAM

REACTIONS (2)
  - Mouth ulceration [Not Recovered/Not Resolved]
  - Eating disorder [Not Recovered/Not Resolved]
